FAERS Safety Report 10010236 (Version 2)
Quarter: 2014Q1

REPORT INFORMATION
  Report Type: Spontaneous
  Country: IT (occurrence: IT)
  Receive Date: 20140313
  Receipt Date: 20140313
  Transmission Date: 20141002
  Serious: Yes (Other)
  Sender: FDA-Public Use
  Company Number: IT-TEVA-464672ISR

PATIENT
  Age: 70 Year
  Sex: Male
  Weight: 56 kg

DRUGS (1)
  1. OXALIPLATINO TEVA [Suspect]
     Indication: COLON CANCER
     Dosage: 130 MILLIGRAM DAILY;
     Route: 042
     Dates: start: 20131210, end: 20131210

REACTIONS (3)
  - Dyspnoea [Recovered/Resolved]
  - Laryngeal oedema [Recovered/Resolved]
  - Stridor [Recovered/Resolved]
